FAERS Safety Report 8560947-1 (Version None)
Quarter: 2012Q3

REPORT INFORMATION
  Report Type: 
  Country: None (occurrence: None)
  Receive Date: 20120802
  Receipt Date: 20120725
  Transmission Date: 20120928
  Serious: Yes (Other)
  Sender: FDA-Public Use
  Company Number: ES-ELI_LILLY_AND_COMPANY-ES201207007936

PATIENT
  Sex: Female

DRUGS (1)
  1. FORTEO [Suspect]
     Dosage: UNK
     Dates: start: 20101101

REACTIONS (5)
  - INTESTINAL OPERATION [None]
  - DRUG INEFFECTIVE [None]
  - COLOSTOMY [None]
  - MALAISE [None]
  - NERVOUSNESS [None]
